FAERS Safety Report 7088140-2 (Version None)
Quarter: 2010Q4

REPORT INFORMATION
  Report Type: 
  Country: None (occurrence: None)
  Receive Date: 20101108
  Receipt Date: 20101025
  Transmission Date: 20110411
  Serious: No
  Sender: FDA-Public Use
  Company Number: KR-JNJFOC-20101007461

PATIENT
  Age: 68 Year
  Sex: Female

DRUGS (2)
  1. DURAGESIC-100 [Suspect]
     Indication: PAIN MANAGEMENT
     Route: 062
  2. MOTILIUM-M [Suspect]
     Indication: ANTIEMETIC SUPPORTIVE CARE
     Route: 048

REACTIONS (5)
  - DYSSTASIA [None]
  - NAUSEA [None]
  - RASH [None]
  - VOMITING [None]
  - WRONG TECHNIQUE IN DRUG USAGE PROCESS [None]
